FAERS Safety Report 14595637 (Version 3)
Quarter: 2018Q2

REPORT INFORMATION
  Report Type: Spontaneous
  Country: GB (occurrence: GB)
  Receive Date: 20180303
  Receipt Date: 20180531
  Transmission Date: 20180711
  Serious: Yes (Hospitalization)
  Sender: FDA-Public Use
  Company Number: GB-BRISTOL-MYERS SQUIBB COMPANY-BMS-2018-016955

PATIENT
  Age: 33 Year
  Sex: Male

DRUGS (1)
  1. ADCORTYL [Suspect]
     Active Substance: TRIAMCINOLONE ACETONIDE
     Indication: PRODUCT USED FOR UNKNOWN INDICATION
     Dosage: 1 DF, UNK
     Route: 030

REACTIONS (5)
  - Incorrect route of drug administration [Unknown]
  - Incorrect dose administered [Unknown]
  - Wrong drug administered [Unknown]
  - Asthma [Unknown]
  - Product preparation error [Unknown]

NARRATIVE: CASE EVENT DATE: 20171010
